FAERS Safety Report 21381915 (Version 3)
Quarter: 2022Q4

REPORT INFORMATION
  Report Type: Spontaneous
  Country: DE (occurrence: DE)
  Receive Date: 20220927
  Receipt Date: 20221112
  Transmission Date: 20230113
  Serious: Yes (Hospitalization)
  Sender: FDA-Public Use
  Company Number: DE-UNITED THERAPEUTICS-UNT-2022-022015

PATIENT

DRUGS (2)
  1. REMODULIN [Suspect]
     Active Substance: TREPROSTINIL
     Indication: Pulmonary arterial hypertension
     Dosage: UNK, CONTINUING
     Route: 041
     Dates: start: 20210323
  2. REMODULIN [Suspect]
     Active Substance: TREPROSTINIL
     Dosage: 0.075 ?G/KG (20 ML VIAL), CONTINUING
     Route: 041

REACTIONS (2)
  - Underdose [Recovered/Resolved]
  - Headache [Recovered/Resolved]

NARRATIVE: CASE EVENT DATE: 20220920
